FAERS Safety Report 5978165-X (Version None)
Quarter: 2008Q4

REPORT INFORMATION
  Report Type: 
  Country: None (occurrence: None)
  Receive Date: 20081204
  Receipt Date: 20081124
  Transmission Date: 20090506
  Serious: Yes (Hospitalization)
  Sender: FDA-Public Use
  Company Number: FR-SOLVAY-00208005670

PATIENT
  Age: 914 Month
  Sex: Female

DRUGS (5)
  1. FUROSEMIDE [Concomitant]
     Indication: DRUG USE FOR UNKNOWN INDICATION
     Dosage: DAILY DOSE: 40 MILLIGRAM(S)
     Route: 065
  2. COVERSYL [Suspect]
     Indication: DRUG USE FOR UNKNOWN INDICATION
     Dosage: DAILY DOSE:  UNKNOWN
     Route: 048
     Dates: start: 20070501, end: 20070501
  3. ALDALIX [Concomitant]
     Indication: DRUG USE FOR UNKNOWN INDICATION
     Dosage: DAILY DOSE:  UNKNOWN
     Route: 065
  4. AMIODARONE HCL [Concomitant]
     Indication: DRUG USE FOR UNKNOWN INDICATION
     Dosage: DAILY DOSE:  UNKNOWN
     Route: 065
  5. KARDEGIC [Concomitant]
     Indication: DRUG USE FOR UNKNOWN INDICATION
     Dosage: DAILY DOSE: 75 MILLIGRAM(S)/KILOGRAM
     Route: 065

REACTIONS (12)
  - AMYLOIDOSIS [None]
  - BLOOD LACTATE DEHYDROGENASE INCREASED [None]
  - FACE OEDEMA [None]
  - HYPOGAMMAGLOBULINAEMIA [None]
  - HYPOXIA [None]
  - LYMPHADENOPATHY [None]
  - LYMPHOPENIA [None]
  - OEDEMA PERIPHERAL [None]
  - PARAESTHESIA [None]
  - PURPURA [None]
  - RALES [None]
  - TONGUE OEDEMA [None]
